FAERS Safety Report 24588718 (Version 3)
Quarter: 2025Q4

REPORT INFORMATION
  Report Type: Report from Study
  Country: CA (occurrence: CA)
  Receive Date: 20241107
  Receipt Date: 20251107
  Transmission Date: 20260117
  Serious: Yes (Other)
  Sender: SANDOZ
  Company Number: CA-002147023-NVSC2022CA190006

PATIENT
  Age: 81 Year
  Sex: Male
  Weight: 82 kg

DRUGS (4)
  1. HYRIMOZ [Suspect]
     Active Substance: ADALIMUMAB-ADAZ
     Indication: Crohn^s disease
     Dosage: 40 MG, QW
     Route: 058
     Dates: start: 20220406
  2. HYRIMOZ [Suspect]
     Active Substance: ADALIMUMAB-ADAZ
     Dosage: 40 MG, QW
     Route: 058
     Dates: start: 20220817
  3. HYRIMOZ [Suspect]
     Active Substance: ADALIMUMAB-ADAZ
     Dosage: 40 MG, QW
     Route: 058
     Dates: start: 202205
  4. HYRIMOZ [Suspect]
     Active Substance: ADALIMUMAB-ADAZ
     Dosage: 40 MG, QW
     Route: 058

REACTIONS (21)
  - Bell^s palsy [Unknown]
  - Pneumonia [Recovering/Resolving]
  - Cough [Recovering/Resolving]
  - Ligament injury [Unknown]
  - Pain in extremity [Not Recovered/Not Resolved]
  - Inflammation [Not Recovered/Not Resolved]
  - Irritable bowel syndrome [Unknown]
  - Epigastric discomfort [Unknown]
  - Flatulence [Unknown]
  - Peripheral swelling [Unknown]
  - Constipation [Unknown]
  - Gait disturbance [Unknown]
  - Abnormal faeces [Unknown]
  - Psychiatric symptom [Unknown]
  - Weight increased [Unknown]
  - Full blood count abnormal [Unknown]
  - Peripheral nerve lesion [Unknown]
  - General physical health deterioration [Unknown]
  - Back pain [Unknown]
  - Abdominal pain upper [Unknown]
  - Off label use [Unknown]

NARRATIVE: CASE EVENT DATE: 20230117
